FAERS Safety Report 21881210 (Version 3)
Quarter: 2023Q1

REPORT INFORMATION
  Report Type: Other
  Country: DE (occurrence: DE)
  Receive Date: 20230118
  Receipt Date: 20230213
  Transmission Date: 20230418
  Serious: Yes (Other)
  Sender: FDA-Public Use
  Company Number: DE-CELLTRION INC.-2023DE000668

PATIENT

DRUGS (18)
  1. RITUXIMAB [Suspect]
     Active Substance: RITUXIMAB
     Indication: Diffuse large B-cell lymphoma
     Dosage: RITUXIMAB, CYTARABIN, MITOXANTRONE
     Dates: start: 20220601, end: 20220630
  2. RITUXIMAB [Suspect]
     Active Substance: RITUXIMAB
     Dosage: R-CHOP
     Dates: start: 20210901, end: 20220101
  3. RITUXIMAB [Suspect]
     Active Substance: RITUXIMAB
     Dosage: RITUXIMAB, LENALIDOMIDE, DEXAMETHASONE
     Dates: start: 20220701, end: 20220710
  4. RITUXIMAB [Suspect]
     Active Substance: RITUXIMAB
     Dosage: R-GEMOX
     Dates: start: 20220201, end: 20220301
  5. RITUXIMAB [Suspect]
     Active Substance: RITUXIMAB
     Dosage: POLA-BR
     Dates: start: 20220501, end: 20220531
  6. DEXAMETHASONE [Suspect]
     Active Substance: DEXAMETHASONE
     Indication: Diffuse large B-cell lymphoma
     Dosage: RITUXIMAB, LENALIDOMIDE, DEXAMETHASONE
     Dates: start: 20220701, end: 20220710
  7. BENDAMUSTINE [Suspect]
     Active Substance: BENDAMUSTINE
     Indication: Diffuse large B-cell lymphoma
     Dosage: POLA-BR
     Dates: start: 20220501, end: 20220531
  8. MITOXANTRONE [Suspect]
     Active Substance: MITOXANTRONE HYDROCHLORIDE
     Indication: Diffuse large B-cell lymphoma
     Dosage: RITUXIMAB, CYTARABIN, MITOXANTRONE
     Dates: start: 20220601, end: 20220630
  9. CYTARABINE [Suspect]
     Active Substance: CYTARABINE
     Indication: Diffuse large B-cell lymphoma
     Dosage: RITUXIMAB, CYTARABIN, MITOXANTRONE
     Dates: start: 20220601, end: 20220630
  10. GEMCITABINE HYDROCHLORIDE\OXALIPLATIN [Suspect]
     Active Substance: GEMCITABINE HYDROCHLORIDE\OXALIPLATIN
     Indication: Diffuse large B-cell lymphoma
     Dosage: R-GEMOX
     Dates: start: 20220201, end: 20220301
  11. POLATUZUMAB VEDOTIN [Suspect]
     Active Substance: POLATUZUMAB VEDOTIN
     Indication: Diffuse large B-cell lymphoma
     Dosage: POLA-BR
     Dates: start: 20220501, end: 20220531
  12. LENALIDOMIDE [Suspect]
     Active Substance: LENALIDOMIDE
     Indication: Diffuse large B-cell lymphoma
     Dosage: TAFASITAMAB, LENALIDOMIDE
     Dates: start: 20220830, end: 20220930
  13. LENALIDOMIDE [Suspect]
     Active Substance: LENALIDOMIDE
     Dosage: RITUXIMAB, LENALIDOMIDE, DEXAMETHASONE
     Dates: start: 20220701, end: 20220710
  14. TAFASITAMAB [Suspect]
     Active Substance: TAFASITAMAB
     Indication: Diffuse large B-cell lymphoma
     Dosage: TAFASITAMAB, LENALIDOMIDE
     Dates: start: 20220830, end: 20220930
  15. DOXORUBICIN [Suspect]
     Active Substance: DOXORUBICIN
     Indication: Diffuse large B-cell lymphoma
     Dosage: R-CHOP
     Route: 042
     Dates: start: 20210901, end: 20220101
  16. CYCLOPHOSPHAMIDE [Suspect]
     Active Substance: CYCLOPHOSPHAMIDE
     Indication: Diffuse large B-cell lymphoma
     Dosage: R-CHOP
     Dates: start: 20210901, end: 20220101
  17. PREDNISONE [Suspect]
     Active Substance: PREDNISONE
     Indication: Diffuse large B-cell lymphoma
     Dosage: R-CHOP
     Dates: start: 20210901, end: 20220101
  18. VINCRISTINE [Suspect]
     Active Substance: VINCRISTINE
     Indication: Diffuse large B-cell lymphoma
     Dosage: R-CHOP
     Route: 042
     Dates: start: 20210901, end: 20220101

REACTIONS (3)
  - Lymphoma [Not Recovered/Not Resolved]
  - Disease progression [Unknown]
  - Product use issue [Unknown]
